FAERS Safety Report 7193014-2 (Version None)
Quarter: 2010Q4

REPORT INFORMATION
  Report Type: 
  Country: None (occurrence: None)
  Receive Date: 20101223
  Receipt Date: 20101111
  Transmission Date: 20110411
  Serious: No
  Sender: FDA-Public Use
  Company Number: US-BAYER-2010-002823

PATIENT
  Sex: Female
  Weight: 49 kg

DRUGS (1)
  1. ALEVE CAPLET/TABLET,MIDOL EXTENDED RELIEF CAPLET [Suspect]
     Indication: DYSMENORRHOEA
     Dosage: 220 MG, ONCE
     Route: 048
     Dates: start: 20101111

REACTIONS (1)
  - DYSMENORRHOEA [None]
